FAERS Safety Report 19882641 (Version 1)
Quarter: 2021Q3

REPORT INFORMATION
  Report Type: Spontaneous
  Country: US (occurrence: US)
  Receive Date: 20210924
  Receipt Date: 20210924
  Transmission Date: 20211014
  Serious: No
  Sender: FDA-Public Use
  Company Number: US-SA-2021SA311655

PATIENT
  Age: 52 Year
  Sex: Female

DRUGS (7)
  1. METHYLPHENIDAT [Concomitant]
     Active Substance: METHYLPHENIDATE
  2. DUPIXENT [Suspect]
     Active Substance: DUPILUMAB
     Indication: DERMATITIS ATOPIC
     Dosage: 300 MG, QOW
     Route: 058
  3. LAMICTAL [Concomitant]
     Active Substance: LAMOTRIGINE
  4. DESVENLAFAXINE. [Concomitant]
     Active Substance: DESVENLAFAXINE
  5. NOVOLOG [Concomitant]
     Active Substance: INSULIN ASPART
  6. AMPICILLIN [Concomitant]
     Active Substance: AMPICILLIN
  7. BUPROPION HYDROCHLORIDE XL [Concomitant]
     Active Substance: BUPROPION HYDROCHLORIDE

REACTIONS (4)
  - Dermatitis atopic [Not Recovered/Not Resolved]
  - Rash [Not Recovered/Not Resolved]
  - Sleep disorder [Not Recovered/Not Resolved]
  - Discomfort [Not Recovered/Not Resolved]
